FAERS Safety Report 20372160 (Version 3)
Quarter: 2022Q1

REPORT INFORMATION
  Report Type: Report from Study
  Country: US (occurrence: US)
  Receive Date: 20220124
  Receipt Date: 20220223
  Transmission Date: 20220423
  Serious: Yes (Other)
  Sender: FDA-Public Use
  Company Number: US-BEH-2022141095

PATIENT
  Age: 40 Year
  Sex: Male

DRUGS (1)
  1. HIZENTRA [Suspect]
     Active Substance: HUMAN IMMUNOGLOBULIN G
     Indication: Primary immunodeficiency syndrome
     Dosage: 12 GRAM, QW
     Route: 058
     Dates: start: 20220110

REACTIONS (6)
  - Urinary tract infection [Recovering/Resolving]
  - Pollakiuria [Recovering/Resolving]
  - Dysuria [Recovering/Resolving]
  - Haemorrhage urinary tract [Recovering/Resolving]
  - Headache [Unknown]
  - Infusion site reaction [Unknown]

NARRATIVE: CASE EVENT DATE: 20220110
